FAERS Safety Report 18869206 (Version 1)
Quarter: 2021Q1

REPORT INFORMATION
  Report Type: Spontaneous
  Country: FR (occurrence: FR)
  Receive Date: 20210210
  Receipt Date: 20210210
  Transmission Date: 20210420
  Serious: Yes (Other)
  Sender: FDA-Public Use
  Company Number: FR-SUN PHARMACEUTICAL INDUSTRIES LTD-2021RR-280106

PATIENT
  Sex: Male

DRUGS (2)
  1. PARACETAMOL [Suspect]
     Active Substance: ACETAMINOPHEN
     Indication: PAIN
     Dosage: 1 GRAM, UNK
     Route: 048
     Dates: start: 201903, end: 202002
  2. PARACETAMOL [Suspect]
     Active Substance: ACETAMINOPHEN
     Indication: PILONIDAL SINUS REPAIR
     Dosage: 1 GRAM, UNK
     Route: 042
     Dates: start: 202007, end: 202007

REACTIONS (8)
  - Malaise [Recovered/Resolved]
  - Urticaria [Recovered/Resolved]
  - Anaphylactic reaction [Recovered/Resolved]
  - Chest discomfort [Recovered/Resolved]
  - Dyspnoea [Recovered/Resolved]
  - Urticaria [Recovered/Resolved]
  - Vomiting [Recovered/Resolved]
  - Urticaria [Recovered/Resolved]

NARRATIVE: CASE EVENT DATE: 201903
